FAERS Safety Report 6688972-6 (Version None)
Quarter: 2010Q2

REPORT INFORMATION
  Report Type: 
  Country: None (occurrence: None)
  Receive Date: 20100420
  Receipt Date: 20100408
  Transmission Date: 20101027
  Serious: Yes (Hospitalization)
  Sender: FDA-Public Use
  Company Number: JP-PFIZER INC-2010045616

PATIENT
  Age: 86 Year
  Sex: Male

DRUGS (6)
  1. GABAPEN [Suspect]
     Dosage: UNK
  2. CLARITHROMYCIN [Concomitant]
  3. TAKEPRON [Concomitant]
  4. DEPAS [Concomitant]
  5. MUCOBULIN [Concomitant]
  6. COTRIM [Concomitant]

REACTIONS (4)
  - ALTERED STATE OF CONSCIOUSNESS [None]
  - BLOOD PRESSURE DECREASED [None]
  - HYPOGLYCAEMIA [None]
  - METABOLIC ACIDOSIS [None]
